FAERS Safety Report 9436662 (Version 1)
Quarter: 2013Q3

REPORT INFORMATION
  Report Type: Spontaneous
  Country: BE (occurrence: BE)
  Receive Date: 20130802
  Receipt Date: 20130802
  Transmission Date: 20140515
  Serious: Yes (Other)
  Sender: FDA-Public Use
  Company Number: BE-TEVA-421019ISR

PATIENT
  Sex: Male

DRUGS (7)
  1. VINCRISTINE [Suspect]
     Indication: BURKITT^S LYMPHOMA
     Route: 037
  2. BUPIVACAINE [Suspect]
     Indication: PAIN
     Dosage: 2.5 MILLIGRAM DAILY;
     Route: 037
  3. BUPIVACAINE [Suspect]
     Indication: PAIN
     Dosage: 5 MILLIGRAM DAILY;
     Route: 037
  4. CYCLOPHOSPHAMIDE [Concomitant]
     Indication: BURKITT^S LYMPHOMA
     Route: 037
  5. PREDNISONE [Concomitant]
     Indication: BURKITT^S LYMPHOMA
     Route: 037
  6. DOXORUBICIN [Concomitant]
     Indication: BURKITT^S LYMPHOMA
     Route: 037
  7. METHOTREXATE [Concomitant]
     Indication: BURKITT^S LYMPHOMA
     Route: 037

REACTIONS (3)
  - Meningitis [Recovering/Resolving]
  - Decreased appetite [Recovered/Resolved]
  - Dysgeusia [Recovered/Resolved]
